FAERS Safety Report 22077408 (Version 11)
Quarter: 2025Q3

REPORT INFORMATION
  Report Type: Spontaneous
  Country: CA (occurrence: CA)
  Receive Date: 20230309
  Receipt Date: 20250716
  Transmission Date: 20251020
  Serious: Yes (Other)
  Sender: BRISTOL-MYERS SQUIBB COMPANY
  Company Number: CA-BRISTOL-MYERS SQUIBB COMPANY-2023-033042

PATIENT
  Age: 36 Year
  Sex: Female

DRUGS (479)
  1. ORENCIA [Suspect]
     Active Substance: ABATACEPT
     Indication: Product used for unknown indication
  2. ORENCIA [Suspect]
     Active Substance: ABATACEPT
  3. ORENCIA [Suspect]
     Active Substance: ABATACEPT
  4. ORENCIA [Suspect]
     Active Substance: ABATACEPT
  5. ORENCIA [Suspect]
     Active Substance: ABATACEPT
     Indication: Product used for unknown indication
     Route: 042
  6. ORENCIA [Suspect]
     Active Substance: ABATACEPT
     Route: 042
  7. ORENCIA [Suspect]
     Active Substance: ABATACEPT
     Route: 042
  8. ABACAVIR [Concomitant]
     Active Substance: ABACAVIR
     Indication: Product used for unknown indication
  9. ABACAVIR SULFATE [Concomitant]
     Active Substance: ABACAVIR SULFATE
     Indication: Product used for unknown indication
  10. ABACAVIR SULFATE [Concomitant]
     Active Substance: ABACAVIR SULFATE
  11. ABACAVIR SULFATE [Concomitant]
     Active Substance: ABACAVIR SULFATE
  12. ACTEMRA [Concomitant]
     Active Substance: TOCILIZUMAB
     Indication: Rheumatoid arthritis
     Route: 058
  13. ACTEMRA [Concomitant]
     Active Substance: TOCILIZUMAB
     Route: 058
  14. ACTEMRA [Concomitant]
     Active Substance: TOCILIZUMAB
     Route: 058
  15. ACTEMRA [Concomitant]
     Active Substance: TOCILIZUMAB
  16. ACTEMRA [Concomitant]
     Active Substance: TOCILIZUMAB
     Route: 058
  17. ACTEMRA [Concomitant]
     Active Substance: TOCILIZUMAB
     Route: 058
  18. ACTEMRA [Concomitant]
     Active Substance: TOCILIZUMAB
     Route: 058
  19. ACTEMRA [Concomitant]
     Active Substance: TOCILIZUMAB
  20. ACTEMRA [Concomitant]
     Active Substance: TOCILIZUMAB
     Route: 058
  21. ACTEMRA [Concomitant]
     Active Substance: TOCILIZUMAB
     Route: 058
  22. ACTEMRA [Concomitant]
     Active Substance: TOCILIZUMAB
     Route: 058
  23. ACTEMRA [Concomitant]
     Active Substance: TOCILIZUMAB
     Route: 058
  24. ACTEMRA [Concomitant]
     Active Substance: TOCILIZUMAB
     Route: 058
  25. ACTEMRA [Concomitant]
     Active Substance: TOCILIZUMAB
  26. ACTEMRA [Concomitant]
     Active Substance: TOCILIZUMAB
     Route: 058
  27. ACTEMRA [Concomitant]
     Active Substance: TOCILIZUMAB
     Route: 058
  28. ACTEMRA [Concomitant]
     Active Substance: TOCILIZUMAB
     Route: 058
  29. ACTEMRA [Concomitant]
     Active Substance: TOCILIZUMAB
     Route: 058
  30. ACTEMRA [Concomitant]
     Active Substance: TOCILIZUMAB
     Route: 058
  31. ACTEMRA [Concomitant]
     Active Substance: TOCILIZUMAB
     Route: 058
  32. ACTEMRA [Concomitant]
     Active Substance: TOCILIZUMAB
     Route: 058
  33. ACTEMRA [Concomitant]
     Active Substance: TOCILIZUMAB
  34. ACTEMRA [Concomitant]
     Active Substance: TOCILIZUMAB
     Route: 058
  35. ACTEMRA [Concomitant]
     Active Substance: TOCILIZUMAB
     Route: 058
  36. ACTEMRA [Concomitant]
     Active Substance: TOCILIZUMAB
     Route: 058
  37. ACTEMRA [Concomitant]
     Active Substance: TOCILIZUMAB
  38. ACTEMRA [Concomitant]
     Active Substance: TOCILIZUMAB
  39. ACTEMRA [Concomitant]
     Active Substance: TOCILIZUMAB
  40. ACTEMRA [Concomitant]
     Active Substance: TOCILIZUMAB
  41. ACTEMRA [Concomitant]
     Active Substance: TOCILIZUMAB
     Route: 058
  42. ACTEMRA [Concomitant]
     Active Substance: TOCILIZUMAB
  43. ACTEMRA [Concomitant]
     Active Substance: TOCILIZUMAB
  44. ACTEMRA [Concomitant]
     Active Substance: TOCILIZUMAB
     Dosage: SUBDERMAL
  45. ACTEMRA [Concomitant]
     Active Substance: TOCILIZUMAB
     Route: 058
  46. ACTEMRA [Concomitant]
     Active Substance: TOCILIZUMAB
     Route: 058
  47. ACTEMRA [Concomitant]
     Active Substance: TOCILIZUMAB
     Route: 058
  48. ACTEMRA [Concomitant]
     Active Substance: TOCILIZUMAB
     Route: 058
  49. ACTEMRA [Concomitant]
     Active Substance: TOCILIZUMAB
  50. ACTEMRA [Concomitant]
     Active Substance: TOCILIZUMAB
  51. ACTEMRA [Concomitant]
     Active Substance: TOCILIZUMAB
  52. ACTEMRA [Concomitant]
     Active Substance: TOCILIZUMAB
     Route: 057
  53. ACTEMRA [Concomitant]
     Active Substance: TOCILIZUMAB
     Route: 058
  54. ACTEMRA [Concomitant]
     Active Substance: TOCILIZUMAB
     Route: 058
  55. ACTEMRA [Concomitant]
     Active Substance: TOCILIZUMAB
     Route: 058
  56. ACTEMRA [Concomitant]
     Active Substance: TOCILIZUMAB
  57. ACTEMRA [Concomitant]
     Active Substance: TOCILIZUMAB
  58. ACTEMRA [Concomitant]
     Active Substance: TOCILIZUMAB
     Dosage: SOLUTION FOR INJECTION/SKIN-PRICK TEST
     Route: 058
  59. ACTEMRA [Concomitant]
     Active Substance: TOCILIZUMAB
     Route: 058
  60. ACTEMRA [Concomitant]
     Active Substance: TOCILIZUMAB
     Dosage: SOLUTION FOR INJECTION/SKIN-PRICK TEST
     Route: 058
  61. ACTEMRA [Concomitant]
     Active Substance: TOCILIZUMAB
     Dosage: SOLUTION FOR INJECTION/SKIN-PRICK TEST
     Route: 058
  62. ACTEMRA [Concomitant]
     Active Substance: TOCILIZUMAB
     Route: 058
  63. ACTEMRA [Concomitant]
     Active Substance: TOCILIZUMAB
     Dosage: SOLUTION FOR INJECTION/SKIN-PRICK TEST
     Route: 058
  64. ACTEMRA [Concomitant]
     Active Substance: TOCILIZUMAB
     Dosage: SOLUTION FOR INJECTION/SKIN-PRICK TEST
     Route: 058
  65. ACTEMRA [Concomitant]
     Active Substance: TOCILIZUMAB
     Route: 058
  66. ADVAIR HFA [Concomitant]
     Active Substance: FLUTICASONE PROPIONATE\SALMETEROL XINAFOATE
     Indication: Product used for unknown indication
  67. ADVAIR HFA [Concomitant]
     Active Substance: FLUTICASONE PROPIONATE\SALMETEROL XINAFOATE
  68. ADVAIR HFA [Concomitant]
     Active Substance: FLUTICASONE PROPIONATE\SALMETEROL XINAFOATE
  69. ADVAIR HFA [Concomitant]
     Active Substance: FLUTICASONE PROPIONATE\SALMETEROL XINAFOATE
  70. ADVAIR HFA [Concomitant]
     Active Substance: FLUTICASONE PROPIONATE\SALMETEROL XINAFOATE
  71. ADVAIR HFA [Concomitant]
     Active Substance: FLUTICASONE PROPIONATE\SALMETEROL XINAFOATE
  72. ADVAIR HFA [Concomitant]
     Active Substance: FLUTICASONE PROPIONATE\SALMETEROL XINAFOATE
  73. ADVAIR HFA [Concomitant]
     Active Substance: FLUTICASONE PROPIONATE\SALMETEROL XINAFOATE
  74. ADVAIR HFA [Concomitant]
     Active Substance: FLUTICASONE PROPIONATE\SALMETEROL XINAFOATE
  75. ADVAIR HFA [Concomitant]
     Active Substance: FLUTICASONE PROPIONATE\SALMETEROL XINAFOATE
  76. ADVAIR HFA [Concomitant]
     Active Substance: FLUTICASONE PROPIONATE\SALMETEROL XINAFOATE
  77. ADVAIR HFA [Concomitant]
     Active Substance: FLUTICASONE PROPIONATE\SALMETEROL XINAFOATE
  78. ALPRAZOLAM [Concomitant]
     Active Substance: ALPRAZOLAM
     Indication: Rheumatoid arthritis
     Route: 048
  79. ALPRAZOLAM [Concomitant]
     Active Substance: ALPRAZOLAM
  80. ALPRAZOLAM [Concomitant]
     Active Substance: ALPRAZOLAM
     Route: 048
  81. ALPRAZOLAM [Concomitant]
     Active Substance: ALPRAZOLAM
  82. ALPRAZOLAM [Concomitant]
     Active Substance: ALPRAZOLAM
  83. BUPROPION [Concomitant]
     Active Substance: BUPROPION
     Indication: Rheumatoid arthritis
  84. BUPROPION [Concomitant]
     Active Substance: BUPROPION
  85. BUPROPION [Concomitant]
     Active Substance: BUPROPION
  86. BUPROPION [Concomitant]
     Active Substance: BUPROPION
  87. BUPROPION [Concomitant]
     Active Substance: BUPROPION
  88. BUPROPION [Concomitant]
     Active Substance: BUPROPION
  89. BUPROPION HYDROCHLORIDE [Concomitant]
     Active Substance: BUPROPION HYDROCHLORIDE
     Indication: Product used for unknown indication
  90. BUPROPION HYDROCHLORIDE [Concomitant]
     Active Substance: BUPROPION HYDROCHLORIDE
  91. BUPROPION HYDROCHLORIDE [Concomitant]
     Active Substance: BUPROPION HYDROCHLORIDE
  92. BUPROPION HYDROCHLORIDE [Concomitant]
     Active Substance: BUPROPION HYDROCHLORIDE
  93. BUPROPION HYDROCHLORIDE [Concomitant]
     Active Substance: BUPROPION HYDROCHLORIDE
  94. BUPROPION HYDROCHLORIDE [Concomitant]
     Active Substance: BUPROPION HYDROCHLORIDE
  95. BUPROPION HYDROCHLORIDE [Concomitant]
     Active Substance: BUPROPION HYDROCHLORIDE
  96. BUPROPION HYDROCHLORIDE [Concomitant]
     Active Substance: BUPROPION HYDROCHLORIDE
  97. CETIRIZINE [Concomitant]
     Active Substance: CETIRIZINE HYDROCHLORIDE
     Indication: Product used for unknown indication
  98. CETIRIZINE [Concomitant]
     Active Substance: CETIRIZINE HYDROCHLORIDE
  99. CETIRIZINE [Concomitant]
     Active Substance: CETIRIZINE HYDROCHLORIDE
  100. CETIRIZINE [Concomitant]
     Active Substance: CETIRIZINE HYDROCHLORIDE
  101. CETIRIZINE [Concomitant]
     Active Substance: CETIRIZINE HYDROCHLORIDE
  102. CETIRIZINE [Concomitant]
     Active Substance: CETIRIZINE HYDROCHLORIDE
  103. CETIRIZINE [Concomitant]
     Active Substance: CETIRIZINE HYDROCHLORIDE
  104. CETIRIZINE [Concomitant]
     Active Substance: CETIRIZINE HYDROCHLORIDE
  105. CETIRIZINE [Concomitant]
     Active Substance: CETIRIZINE HYDROCHLORIDE
  106. CETIRIZINE [Concomitant]
     Active Substance: CETIRIZINE HYDROCHLORIDE
  107. CHLORMEZANONE [Concomitant]
     Active Substance: CHLORMEZANONE
     Indication: Rheumatoid arthritis
  108. CHLORMEZANONE [Concomitant]
     Active Substance: CHLORMEZANONE
  109. CITALOPRAM HYDROBROMIDE [Concomitant]
     Active Substance: CITALOPRAM HYDROBROMIDE
     Indication: Product used for unknown indication
  110. CITALOPRAM HYDROBROMIDE [Concomitant]
     Active Substance: CITALOPRAM HYDROBROMIDE
  111. CLONIDINE [Concomitant]
     Active Substance: CLONIDINE
     Indication: Eczema
  112. CLONIDINE HYDROCHLORIDE [Concomitant]
     Active Substance: CLONIDINE HYDROCHLORIDE
     Indication: Eczema
  113. CODEINE [Concomitant]
     Active Substance: CODEINE
     Indication: Rheumatoid arthritis
  114. CYCLOBENZAPRINE [Concomitant]
     Active Substance: CYCLOBENZAPRINE
     Indication: Eczema
  115. CYCLOBENZAPRINE [Concomitant]
     Active Substance: CYCLOBENZAPRINE
     Route: 048
  116. CYCLOBENZAPRINE [Concomitant]
     Active Substance: CYCLOBENZAPRINE
     Route: 047
  117. DEMEROL [Concomitant]
     Active Substance: MEPERIDINE HYDROCHLORIDE
     Indication: Rheumatoid arthritis
  118. DICLOFENAC SODIUM [Concomitant]
     Active Substance: DICLOFENAC SODIUM
     Indication: Rheumatoid arthritis
  119. DIPHENHYDRAMINE [Concomitant]
     Active Substance: DIPHENHYDRAMINE
     Indication: Product used for unknown indication
  120. DIPHENHYDRAMINE [Concomitant]
     Active Substance: DIPHENHYDRAMINE
  121. DIPHENHYDRAMINE [Concomitant]
     Active Substance: DIPHENHYDRAMINE
  122. DIPHENHYDRAMINE [Concomitant]
     Active Substance: DIPHENHYDRAMINE
  123. DIPHENHYDRAMINE [Concomitant]
     Active Substance: DIPHENHYDRAMINE
  124. DIPHENHYDRAMINE [Concomitant]
     Active Substance: DIPHENHYDRAMINE
  125. DIPHENHYDRAMINE [Concomitant]
     Active Substance: DIPHENHYDRAMINE
  126. DIPHENHYDRAMINE [Concomitant]
     Active Substance: DIPHENHYDRAMINE
  127. DIPHENHYDRAMINE [Concomitant]
     Active Substance: DIPHENHYDRAMINE
  128. DIPHENHYDRAMINE [Concomitant]
     Active Substance: DIPHENHYDRAMINE
  129. DIPHENHYDRAMINE [Concomitant]
     Active Substance: DIPHENHYDRAMINE
  130. DIPHENHYDRAMINE [Concomitant]
     Active Substance: DIPHENHYDRAMINE
  131. DIPHENHYDRAMINE [Concomitant]
     Active Substance: DIPHENHYDRAMINE
  132. DIPHENHYDRAMINE [Concomitant]
     Active Substance: DIPHENHYDRAMINE
  133. ALBUTEROL SULFATE [Concomitant]
     Active Substance: ALBUTEROL SULFATE
     Indication: Product used for unknown indication
  134. ALBUTEROL SULFATE [Concomitant]
     Active Substance: ALBUTEROL SULFATE
  135. ACETAMINOPHEN\OXYCODONE HYDROCHLORIDE [Concomitant]
     Active Substance: ACETAMINOPHEN\OXYCODONE HYDROCHLORIDE
     Indication: Product used for unknown indication
  136. ACETAMINOPHEN\OXYCODONE HYDROCHLORIDE [Concomitant]
     Active Substance: ACETAMINOPHEN\OXYCODONE HYDROCHLORIDE
  137. ALBUTEROL SULFATE [Concomitant]
     Active Substance: ALBUTEROL SULFATE
     Indication: Product used for unknown indication
  138. DOLUTEGRAVIR SODIUM [Concomitant]
     Active Substance: DOLUTEGRAVIR SODIUM
     Indication: Product used for unknown indication
  139. DOLUTEGRAVIR SODIUM [Concomitant]
     Active Substance: DOLUTEGRAVIR SODIUM
  140. DOLUTEGRAVIR SODIUM [Concomitant]
     Active Substance: DOLUTEGRAVIR SODIUM
  141. ENBREL [Concomitant]
     Active Substance: ETANERCEPT
     Indication: Rheumatoid arthritis
  142. FLOVENT [Concomitant]
     Active Substance: FLUTICASONE PROPIONATE
     Indication: Product used for unknown indication
  143. FLOVENT [Concomitant]
     Active Substance: FLUTICASONE PROPIONATE
  144. FLUCONAZOLE [Concomitant]
     Active Substance: FLUCONAZOLE
     Indication: Product used for unknown indication
  145. FLUTICASONE PROPIONATE\SALMETEROL XINAFOATE [Concomitant]
     Active Substance: FLUTICASONE PROPIONATE\SALMETEROL XINAFOATE
     Indication: Product used for unknown indication
  146. FLUTICASONE PROPIONATE\SALMETEROL XINAFOATE [Concomitant]
     Active Substance: FLUTICASONE PROPIONATE\SALMETEROL XINAFOATE
  147. FLUTICASONE PROPIONATE\SALMETEROL XINAFOATE [Concomitant]
     Active Substance: FLUTICASONE PROPIONATE\SALMETEROL XINAFOATE
  148. FLUTICASONE PROPIONATE\SALMETEROL XINAFOATE [Concomitant]
     Active Substance: FLUTICASONE PROPIONATE\SALMETEROL XINAFOATE
  149. FUROSEMIDE [Concomitant]
     Active Substance: FUROSEMIDE
     Indication: Product used for unknown indication
  150. GABAPENTIN [Concomitant]
     Active Substance: GABAPENTIN
     Indication: Product used for unknown indication
  151. HUMIRA [Concomitant]
     Active Substance: ADALIMUMAB
     Indication: Product used for unknown indication
     Route: 058
  152. HUMIRA [Concomitant]
     Active Substance: ADALIMUMAB
  153. HUMIRA [Concomitant]
     Active Substance: ADALIMUMAB
  154. HUMIRA [Concomitant]
     Active Substance: ADALIMUMAB
     Route: 058
  155. HUMIRA [Concomitant]
     Active Substance: ADALIMUMAB
     Route: 058
  156. HUMIRA [Concomitant]
     Active Substance: ADALIMUMAB
  157. HUMIRA [Concomitant]
     Active Substance: ADALIMUMAB
     Route: 058
  158. HUMIRA [Concomitant]
     Active Substance: ADALIMUMAB
     Route: 058
  159. HUMIRA [Concomitant]
     Active Substance: ADALIMUMAB
  160. HYDROMORPHONE [Concomitant]
     Active Substance: HYDROMORPHONE
     Indication: Product used for unknown indication
  161. HYDROMORPHONE [Concomitant]
     Active Substance: HYDROMORPHONE
  162. HYDROMORPHONE [Concomitant]
     Active Substance: HYDROMORPHONE
  163. HYDROMORPHONE HYDROCHLORIDE [Concomitant]
     Active Substance: HYDROMORPHONE HYDROCHLORIDE
     Indication: Product used for unknown indication
  164. HYDROMORPHONE HYDROCHLORIDE [Concomitant]
     Active Substance: HYDROMORPHONE HYDROCHLORIDE
  165. HYDROMORPHONE HYDROCHLORIDE [Concomitant]
     Active Substance: HYDROMORPHONE HYDROCHLORIDE
  166. HYDROMORPHONE HYDROCHLORIDE [Concomitant]
     Active Substance: HYDROMORPHONE HYDROCHLORIDE
  167. HYDROMORPHONE HYDROCHLORIDE [Concomitant]
     Active Substance: HYDROMORPHONE HYDROCHLORIDE
  168. KETOPROFEN [Concomitant]
     Active Substance: KETOPROFEN
     Indication: Product used for unknown indication
  169. METHYLPREDNISOLONE ACETATE [Concomitant]
     Active Substance: METHYLPREDNISOLONE ACETATE
     Indication: Product used for unknown indication
  170. METHYLPREDNISOLONE ACETATE [Concomitant]
     Active Substance: METHYLPREDNISOLONE ACETATE
  171. METHYLPREDNISOLONE ACETATE [Concomitant]
     Active Substance: METHYLPREDNISOLONE ACETATE
  172. METHYLPREDNISOLONE ACETATE [Concomitant]
     Active Substance: METHYLPREDNISOLONE ACETATE
  173. METHYLPREDNISOLONE ACETATE [Concomitant]
     Active Substance: METHYLPREDNISOLONE ACETATE
  174. METHYLPREDNISOLONE ACETATE [Concomitant]
     Active Substance: METHYLPREDNISOLONE ACETATE
  175. METHYLPREDNISOLONE ACETATE [Concomitant]
     Active Substance: METHYLPREDNISOLONE ACETATE
  176. METHYLPREDNISOLONE ACETATE [Concomitant]
     Active Substance: METHYLPREDNISOLONE ACETATE
  177. METHYLPREDNISOLONE ACETATE [Concomitant]
     Active Substance: METHYLPREDNISOLONE ACETATE
  178. METHYLPREDNISOLONE ACETATE [Concomitant]
     Active Substance: METHYLPREDNISOLONE ACETATE
  179. METHYLPREDNISOLONE ACETATE [Concomitant]
     Active Substance: METHYLPREDNISOLONE ACETATE
  180. METHYLPREDNISOLONE ACETATE [Concomitant]
     Active Substance: METHYLPREDNISOLONE ACETATE
  181. METHYLPREDNISOLONE ACETATE [Concomitant]
     Active Substance: METHYLPREDNISOLONE ACETATE
  182. METHYLPREDNISOLONE ACETATE [Concomitant]
     Active Substance: METHYLPREDNISOLONE ACETATE
  183. METHYLPREDNISOLONE ACETATE [Concomitant]
     Active Substance: METHYLPREDNISOLONE ACETATE
  184. METHYLPREDNISOLONE ACETATE [Concomitant]
     Active Substance: METHYLPREDNISOLONE ACETATE
  185. METHYLPREDNISOLONE ACETATE [Concomitant]
     Active Substance: METHYLPREDNISOLONE ACETATE
  186. METHYLPREDNISOLONE ACETATE [Concomitant]
     Active Substance: METHYLPREDNISOLONE ACETATE
  187. METHYLPREDNISOLONE ACETATE [Concomitant]
     Active Substance: METHYLPREDNISOLONE ACETATE
  188. METHYLPREDNISOLONE ACETATE [Concomitant]
     Active Substance: METHYLPREDNISOLONE ACETATE
  189. METHYLPREDNISOLONE ACETATE [Concomitant]
     Active Substance: METHYLPREDNISOLONE ACETATE
  190. METHYLPREDNISOLONE ACETATE [Concomitant]
     Active Substance: METHYLPREDNISOLONE ACETATE
  191. METHYLPREDNISOLONE ACETATE [Concomitant]
     Active Substance: METHYLPREDNISOLONE ACETATE
  192. METHYLPREDNISOLONE ACETATE [Concomitant]
     Active Substance: METHYLPREDNISOLONE ACETATE
  193. METHYLPREDNISOLONE ACETATE [Concomitant]
     Active Substance: METHYLPREDNISOLONE ACETATE
  194. METHYLPREDNISOLONE ACETATE [Concomitant]
     Active Substance: METHYLPREDNISOLONE ACETATE
  195. METHYLPREDNISOLONE ACETATE [Concomitant]
     Active Substance: METHYLPREDNISOLONE ACETATE
  196. METHYLPREDNISOLONE ACETATE [Concomitant]
     Active Substance: METHYLPREDNISOLONE ACETATE
  197. METHYLPREDNISOLONE SODIUM SUCCINATE [Concomitant]
     Active Substance: METHYLPREDNISOLONE SODIUM SUCCINATE
     Indication: Product used for unknown indication
  198. METHYLPREDNISOLONE SODIUM SUCCINATE [Concomitant]
     Active Substance: METHYLPREDNISOLONE SODIUM SUCCINATE
  199. MONTELUKAST SODIUM [Concomitant]
     Active Substance: MONTELUKAST SODIUM
     Indication: Product used for unknown indication
  200. MONTELUKAST SODIUM [Concomitant]
     Active Substance: MONTELUKAST SODIUM
     Route: 058
  201. MORPHINE SULFATE [Concomitant]
     Active Substance: MORPHINE SULFATE
     Indication: Product used for unknown indication
  202. MORPHINE SULFATE [Concomitant]
     Active Substance: MORPHINE SULFATE
     Route: 058
  203. MORPHINE SULFATE [Concomitant]
     Active Substance: MORPHINE SULFATE
     Route: 058
  204. MORPHINE SULFATE [Concomitant]
     Active Substance: MORPHINE SULFATE
  205. MOXIFLOXACIN HYDROCHLORIDE [Concomitant]
     Active Substance: MOXIFLOXACIN HYDROCHLORIDE
     Indication: Product used for unknown indication
     Route: 058
  206. MOXIFLOXACIN HYDROCHLORIDE [Concomitant]
     Active Substance: MOXIFLOXACIN HYDROCHLORIDE
  207. MOXIFLOXACIN HYDROCHLORIDE [Concomitant]
     Active Substance: MOXIFLOXACIN HYDROCHLORIDE
  208. NORTRIPTYLINE [Concomitant]
     Active Substance: NORTRIPTYLINE
     Indication: Product used for unknown indication
  209. NORTRIPTYLINE HYDROCHLORIDE [Concomitant]
     Active Substance: NORTRIPTYLINE HYDROCHLORIDE
     Indication: Product used for unknown indication
  210. NORTRIPTYLINE HYDROCHLORIDE [Concomitant]
     Active Substance: NORTRIPTYLINE HYDROCHLORIDE
  211. NORTRIPTYLINE HYDROCHLORIDE [Concomitant]
     Active Substance: NORTRIPTYLINE HYDROCHLORIDE
  212. NORTRIPTYLINE HYDROCHLORIDE [Concomitant]
     Active Substance: NORTRIPTYLINE HYDROCHLORIDE
  213. ONDANSETRON [Concomitant]
     Active Substance: ONDANSETRON
     Indication: Product used for unknown indication
  214. PANTOPRAZOLE MAGNESIUM [Concomitant]
     Active Substance: PANTOPRAZOLE MAGNESIUM
     Indication: Product used for unknown indication
  215. PANTOPRAZOLE MAGNESIUM [Concomitant]
     Active Substance: PANTOPRAZOLE MAGNESIUM
  216. PANTOPRAZOLE MAGNESIUM [Concomitant]
     Active Substance: PANTOPRAZOLE MAGNESIUM
  217. PANTOPRAZOLE MAGNESIUM [Concomitant]
     Active Substance: PANTOPRAZOLE MAGNESIUM
     Route: 030
  218. PANTOPRAZOLE MAGNESIUM [Concomitant]
     Active Substance: PANTOPRAZOLE MAGNESIUM
  219. PANTOPRAZOLE MAGNESIUM [Concomitant]
     Active Substance: PANTOPRAZOLE MAGNESIUM
     Route: 030
  220. PANTOPRAZOLE MAGNESIUM [Concomitant]
     Active Substance: PANTOPRAZOLE MAGNESIUM
     Route: 030
  221. PROGESTERONE [Concomitant]
     Active Substance: PROGESTERONE
     Indication: Product used for unknown indication
     Route: 030
  222. PROGESTERONE [Concomitant]
     Active Substance: PROGESTERONE
  223. PROGESTERONE [Concomitant]
     Active Substance: PROGESTERONE
  224. PROGESTERONE [Concomitant]
     Active Substance: PROGESTERONE
     Route: 030
  225. PROGESTERONE [Concomitant]
     Active Substance: PROGESTERONE
     Route: 030
  226. PROGESTERONE [Concomitant]
     Active Substance: PROGESTERONE
  227. PROGESTERONE [Concomitant]
     Active Substance: PROGESTERONE
     Route: 030
  228. PROGESTERONE [Concomitant]
     Active Substance: PROGESTERONE
  229. PROGESTERONE [Concomitant]
     Active Substance: PROGESTERONE
  230. PROGESTERONE [Concomitant]
     Active Substance: PROGESTERONE
  231. PROGESTERONE [Concomitant]
     Active Substance: PROGESTERONE
  232. PROGESTERONE [Concomitant]
     Active Substance: PROGESTERONE
     Route: 030
  233. PROGESTERONE [Concomitant]
     Active Substance: PROGESTERONE
     Route: 030
  234. PROGESTERONE [Concomitant]
     Active Substance: PROGESTERONE
     Route: 030
  235. PROGESTERONE [Concomitant]
     Active Substance: PROGESTERONE
     Route: 058
  236. QUETIAPINE FUMARATE [Concomitant]
     Active Substance: QUETIAPINE FUMARATE
     Indication: Product used for unknown indication
     Route: 048
  237. QUETIAPINE FUMARATE [Concomitant]
     Active Substance: QUETIAPINE FUMARATE
     Route: 048
  238. QUETIAPINE FUMARATE [Concomitant]
     Active Substance: QUETIAPINE FUMARATE
     Route: 048
  239. QUETIAPINE FUMARATE [Concomitant]
     Active Substance: QUETIAPINE FUMARATE
  240. RANITIDINE HYDROCHLORIDE [Concomitant]
     Active Substance: RANITIDINE HYDROCHLORIDE
     Indication: Product used for unknown indication
  241. RANITIDINE HYDROCHLORIDE [Concomitant]
     Active Substance: RANITIDINE HYDROCHLORIDE
  242. RANITIDINE HYDROCHLORIDE [Concomitant]
     Active Substance: RANITIDINE HYDROCHLORIDE
  243. RANITIDINE HYDROCHLORIDE [Concomitant]
     Active Substance: RANITIDINE HYDROCHLORIDE
  244. RANITIDINE HYDROCHLORIDE [Concomitant]
     Active Substance: RANITIDINE HYDROCHLORIDE
  245. RANITIDINE HYDROCHLORIDE [Concomitant]
     Active Substance: RANITIDINE HYDROCHLORIDE
     Dosage: TABLET (EXTENDED- RELEASE)
  246. RANITIDINE HYDROCHLORIDE [Concomitant]
     Active Substance: RANITIDINE HYDROCHLORIDE
     Dosage: TABLET (EXTENDED- RELEASE)
  247. RANITIDINE HYDROCHLORIDE [Concomitant]
     Active Substance: RANITIDINE HYDROCHLORIDE
     Route: 016
  248. RANITIDINE HYDROCHLORIDE [Concomitant]
     Active Substance: RANITIDINE HYDROCHLORIDE
     Route: 016
  249. CETIRIZINE HYDROCHLORIDE [Concomitant]
     Active Substance: CETIRIZINE HYDROCHLORIDE
     Indication: Product used for unknown indication
  250. CETIRIZINE HYDROCHLORIDE [Concomitant]
     Active Substance: CETIRIZINE HYDROCHLORIDE
  251. CETIRIZINE HYDROCHLORIDE [Concomitant]
     Active Substance: CETIRIZINE HYDROCHLORIDE
  252. CETIRIZINE HYDROCHLORIDE [Concomitant]
     Active Substance: CETIRIZINE HYDROCHLORIDE
  253. REMICADE [Concomitant]
     Active Substance: INFLIXIMAB
     Indication: Product used for unknown indication
     Route: 042
  254. REMICADE [Concomitant]
     Active Substance: INFLIXIMAB
     Route: 040
  255. REMICADE [Concomitant]
     Active Substance: INFLIXIMAB
     Route: 040
  256. REMICADE [Concomitant]
     Active Substance: INFLIXIMAB
     Route: 041
  257. REMICADE [Concomitant]
     Active Substance: INFLIXIMAB
     Route: 042
  258. REMICADE [Concomitant]
     Active Substance: INFLIXIMAB
     Route: 042
  259. REMICADE [Concomitant]
     Active Substance: INFLIXIMAB
     Route: 042
  260. REMICADE [Concomitant]
     Active Substance: INFLIXIMAB
  261. REMICADE [Concomitant]
     Active Substance: INFLIXIMAB
  262. RESTORIL [Concomitant]
     Active Substance: TEMAZEPAM
     Indication: Product used for unknown indication
  263. RITUXIMAB [Concomitant]
     Active Substance: RITUXIMAB
     Indication: Rheumatoid arthritis
     Route: 042
  264. RITUXIMAB [Concomitant]
     Active Substance: RITUXIMAB
     Route: 017
  265. RITUXIMAB [Concomitant]
     Active Substance: RITUXIMAB
     Route: 041
  266. RITUXIMAB [Concomitant]
     Active Substance: RITUXIMAB
     Route: 042
  267. RITUXIMAB [Concomitant]
     Active Substance: RITUXIMAB
     Route: 042
  268. RITUXIMAB [Concomitant]
     Active Substance: RITUXIMAB
     Route: 041
  269. RITUXIMAB [Concomitant]
     Active Substance: RITUXIMAB
  270. RITUXIMAB [Concomitant]
     Active Substance: RITUXIMAB
     Route: 042
  271. RITUXIMAB [Concomitant]
     Active Substance: RITUXIMAB
     Route: 042
  272. RITUXIMAB [Concomitant]
     Active Substance: RITUXIMAB
     Route: 042
  273. RITUXIMAB [Concomitant]
     Active Substance: RITUXIMAB
     Route: 042
  274. RITUXIMAB [Concomitant]
     Active Substance: RITUXIMAB
     Route: 042
  275. RITUXIMAB [Concomitant]
     Active Substance: RITUXIMAB
     Route: 042
  276. RITUXIMAB [Concomitant]
     Active Substance: RITUXIMAB
     Route: 042
  277. RITUXIMAB [Concomitant]
     Active Substance: RITUXIMAB
     Route: 042
  278. RITUXIMAB [Concomitant]
     Active Substance: RITUXIMAB
     Route: 042
  279. RITUXIMAB [Concomitant]
     Active Substance: RITUXIMAB
     Route: 042
  280. RITUXIMAB [Concomitant]
     Active Substance: RITUXIMAB
     Route: 042
  281. RITUXIMAB [Concomitant]
     Active Substance: RITUXIMAB
     Route: 042
  282. RITUXIMAB [Concomitant]
     Active Substance: RITUXIMAB
     Route: 017
  283. RITUXIMAB [Concomitant]
     Active Substance: RITUXIMAB
     Route: 042
  284. RITUXIMAB [Concomitant]
     Active Substance: RITUXIMAB
     Route: 041
  285. RITUXIMAB [Concomitant]
     Active Substance: RITUXIMAB
     Route: 042
  286. RITUXIMAB [Concomitant]
     Active Substance: RITUXIMAB
     Route: 042
  287. RITUXIMAB [Concomitant]
     Active Substance: RITUXIMAB
  288. RITUXIMAB [Concomitant]
     Active Substance: RITUXIMAB
     Route: 042
  289. RITUXIMAB [Concomitant]
     Active Substance: RITUXIMAB
     Route: 042
  290. ALBUTEROL [Concomitant]
     Active Substance: ALBUTEROL
     Indication: Product used for unknown indication
  291. ALBUTEROL [Concomitant]
     Active Substance: ALBUTEROL
  292. SENNA LEAF [Concomitant]
     Active Substance: SENNA LEAF
     Indication: Product used for unknown indication
  293. SENNA LEAF [Concomitant]
     Active Substance: SENNA LEAF
  294. SENNA LEAF [Concomitant]
     Active Substance: SENNA LEAF
     Route: 048
  295. SENNA LEAF [Concomitant]
     Active Substance: SENNA LEAF
     Indication: Product used for unknown indication
     Route: 048
  296. SENNA LEAF [Concomitant]
     Active Substance: SENNA LEAF
  297. SENNA LEAF [Concomitant]
     Active Substance: SENNA LEAF
  298. SENNA LEAF [Concomitant]
     Active Substance: SENNA LEAF
  299. SENNA LEAF [Concomitant]
     Active Substance: SENNA LEAF
     Route: 048
  300. SENNA LEAF [Concomitant]
     Active Substance: SENNA LEAF
  301. SENNA LEAF [Concomitant]
     Active Substance: SENNA LEAF
     Route: 048
  302. SENNOSIDES [Concomitant]
     Active Substance: SENNOSIDES
     Indication: Product used for unknown indication
  303. SENNOSIDES [Concomitant]
     Active Substance: SENNOSIDES
  304. SENNOSIDES [Concomitant]
     Active Substance: SENNOSIDES
  305. SENNOSIDES [Concomitant]
     Active Substance: SENNOSIDES
  306. SENNOSIDES [Concomitant]
     Active Substance: SENNOSIDES
  307. SENNOSIDES [Concomitant]
     Active Substance: SENNOSIDES
  308. SENNOSIDES [Concomitant]
     Active Substance: SENNOSIDES
  309. SENNOSIDES [Concomitant]
     Active Substance: SENNOSIDES
  310. SENOKOT [Concomitant]
     Active Substance: SENNOSIDES
     Indication: Product used for unknown indication
  311. SENOKOT [Concomitant]
     Active Substance: SENNOSIDES
  312. SENOKOT [Concomitant]
     Active Substance: SENNOSIDES
  313. SENOKOT [Concomitant]
     Active Substance: SENNOSIDES
  314. SENOKOT [Concomitant]
     Active Substance: SENNOSIDES
  315. SINGULAIR [Concomitant]
     Active Substance: MONTELUKAST SODIUM
     Indication: Product used for unknown indication
  316. TEMAZEPAM [Concomitant]
     Active Substance: TEMAZEPAM
     Indication: Product used for unknown indication
  317. TEMAZEPAM [Concomitant]
     Active Substance: TEMAZEPAM
  318. TEMAZEPAM [Concomitant]
     Active Substance: TEMAZEPAM
  319. TEMAZEPAM [Concomitant]
     Active Substance: TEMAZEPAM
  320. TEMAZEPAM [Concomitant]
     Active Substance: TEMAZEPAM
  321. TYLENOL [Concomitant]
     Active Substance: ACETAMINOPHEN
     Indication: Product used for unknown indication
  322. VENLAFAXINE [Concomitant]
     Active Substance: VENLAFAXINE HYDROCHLORIDE
     Indication: Product used for unknown indication
  323. VENTOLIN [Concomitant]
     Active Substance: ALBUTEROL SULFATE
     Indication: Product used for unknown indication
  324. VITAMIN C [Concomitant]
     Active Substance: ASCORBIC ACID
     Indication: Product used for unknown indication
  325. VITAMIN C [Concomitant]
     Active Substance: ASCORBIC ACID
  326. VITAMIN C [Concomitant]
     Active Substance: ASCORBIC ACID
  327. VITAMIN C [Concomitant]
     Active Substance: ASCORBIC ACID
  328. VITAMIN C [Concomitant]
     Active Substance: ASCORBIC ACID
  329. VITAMIN C [Concomitant]
     Active Substance: ASCORBIC ACID
  330. WELLBUTRIN [Concomitant]
     Active Substance: BUPROPION HYDROCHLORIDE
     Indication: Product used for unknown indication
  331. WELLBUTRIN [Concomitant]
     Active Substance: BUPROPION HYDROCHLORIDE
  332. WELLBUTRIN [Concomitant]
     Active Substance: BUPROPION HYDROCHLORIDE
  333. WELLBUTRIN [Concomitant]
     Active Substance: BUPROPION HYDROCHLORIDE
  334. WELLBUTRIN [Concomitant]
     Active Substance: BUPROPION HYDROCHLORIDE
  335. WELLBUTRIN [Concomitant]
     Active Substance: BUPROPION HYDROCHLORIDE
  336. ZOPICLONE [Concomitant]
     Active Substance: ZOPICLONE
     Indication: Product used for unknown indication
  337. ZOPICLONE [Concomitant]
     Active Substance: ZOPICLONE
  338. ABACAVIR SULFATE [Concomitant]
     Active Substance: ABACAVIR SULFATE
     Indication: Product used for unknown indication
  339. ABACAVIR SULFATE\DOLUTEGRAVIR SODIUM\LAMIVUDINE [Concomitant]
     Active Substance: ABACAVIR SULFATE\DOLUTEGRAVIR SODIUM\LAMIVUDINE
     Indication: Product used for unknown indication
  340. ABACAVIR SULFATE\DOLUTEGRAVIR SODIUM\LAMIVUDINE [Concomitant]
     Active Substance: ABACAVIR SULFATE\DOLUTEGRAVIR SODIUM\LAMIVUDINE
  341. ACETAMINOPHEN\CODEINE PHOSPHATE [Concomitant]
     Active Substance: ACETAMINOPHEN\CODEINE PHOSPHATE
     Indication: Product used for unknown indication
  342. ACETAMINOPHEN\CODEINE PHOSPHATE [Concomitant]
     Active Substance: ACETAMINOPHEN\CODEINE PHOSPHATE
  343. ONDANSETRON HYDROCHLORIDE [Concomitant]
     Active Substance: ONDANSETRON HYDROCHLORIDE
     Indication: Product used for unknown indication
  344. CLONIDINE HYDROCHLORIDE [Concomitant]
     Active Substance: CLONIDINE HYDROCHLORIDE
     Indication: Eczema
  345. FLUTICASONE PROPIONATE [Concomitant]
     Active Substance: FLUTICASONE PROPIONATE
     Indication: Rheumatoid arthritis
  346. FLUTICASONE PROPIONATE [Concomitant]
     Active Substance: FLUTICASONE PROPIONATE
  347. FLUTICASONE PROPIONATE [Concomitant]
     Active Substance: FLUTICASONE PROPIONATE
  348. FLUTICASONE PROPIONATE [Concomitant]
     Active Substance: FLUTICASONE PROPIONATE
  349. FLUTICASONE PROPIONATE [Concomitant]
     Active Substance: FLUTICASONE PROPIONATE
  350. FLUTICASONE PROPIONATE [Concomitant]
     Active Substance: FLUTICASONE PROPIONATE
  351. FLUTICASONE PROPIONATE [Concomitant]
     Active Substance: FLUTICASONE PROPIONATE
  352. PANTOPRAZOLE [Concomitant]
     Active Substance: PANTOPRAZOLE
     Indication: Product used for unknown indication
  353. VENLAFAXINE HYDROCHLORIDE [Concomitant]
     Active Substance: VENLAFAXINE HYDROCHLORIDE
     Indication: Product used for unknown indication
  354. VENLAFAXINE HYDROCHLORIDE [Concomitant]
     Active Substance: VENLAFAXINE HYDROCHLORIDE
  355. VENLAFAXINE HYDROCHLORIDE [Concomitant]
     Active Substance: VENLAFAXINE HYDROCHLORIDE
     Route: 016
  356. VENLAFAXINE HYDROCHLORIDE [Concomitant]
     Active Substance: VENLAFAXINE HYDROCHLORIDE
     Route: 016
  357. DICLOFENAC SODIUM [Concomitant]
     Active Substance: DICLOFENAC SODIUM
     Indication: Product used for unknown indication
  358. DICLOFENAC SODIUM [Concomitant]
     Active Substance: DICLOFENAC SODIUM
  359. DICLOFENAC SODIUM [Concomitant]
     Active Substance: DICLOFENAC SODIUM
  360. OXYCODONE HYDROCHLORIDE [Concomitant]
     Active Substance: OXYCODONE HYDROCHLORIDE
     Indication: Product used for unknown indication
  361. OXYCODONE HYDROCHLORIDE [Concomitant]
     Active Substance: OXYCODONE HYDROCHLORIDE
  362. QUETIAPINE [Concomitant]
     Active Substance: QUETIAPINE
     Indication: Product used for unknown indication
  363. QUETIAPINE [Concomitant]
     Active Substance: QUETIAPINE
     Route: 048
  364. ABACAVIR SULFATE\LAMIVUDINE [Concomitant]
     Active Substance: ABACAVIR SULFATE\LAMIVUDINE
     Indication: Product used for unknown indication
  365. ABACAVIR SULFATE\LAMIVUDINE [Concomitant]
     Active Substance: ABACAVIR SULFATE\LAMIVUDINE
  366. CALCIUM SENNOSIDES [Concomitant]
     Active Substance: SENNOSIDES
     Indication: Product used for unknown indication
  367. CALCIUM SENNOSIDES [Concomitant]
     Active Substance: SENNOSIDES
  368. CALCIUM SENNOSIDES [Concomitant]
     Active Substance: SENNOSIDES
  369. CETIRIZINE HYDROCHLORIDE [Concomitant]
     Active Substance: CETIRIZINE HYDROCHLORIDE
     Indication: Product used for unknown indication
  370. CETIRIZINE HYDROCHLORIDE [Concomitant]
     Active Substance: CETIRIZINE HYDROCHLORIDE
  371. CETIRIZINE HYDROCHLORIDE [Concomitant]
     Active Substance: CETIRIZINE HYDROCHLORIDE
  372. CETIRIZINE HYDROCHLORIDE [Concomitant]
     Active Substance: CETIRIZINE HYDROCHLORIDE
  373. CETIRIZINE HYDROCHLORIDE [Concomitant]
     Active Substance: CETIRIZINE HYDROCHLORIDE
  374. CETIRIZINE HYDROCHLORIDE [Concomitant]
     Active Substance: CETIRIZINE HYDROCHLORIDE
  375. CETIRIZINE HYDROCHLORIDE [Concomitant]
     Active Substance: CETIRIZINE HYDROCHLORIDE
  376. CETIRIZINE HYDROCHLORIDE [Concomitant]
     Active Substance: CETIRIZINE HYDROCHLORIDE
  377. CETIRIZINE HYDROCHLORIDE [Concomitant]
     Active Substance: CETIRIZINE HYDROCHLORIDE
  378. CETIRIZINE HYDROCHLORIDE [Concomitant]
     Active Substance: CETIRIZINE HYDROCHLORIDE
  379. CETIRIZINE HYDROCHLORIDE [Concomitant]
     Active Substance: CETIRIZINE HYDROCHLORIDE
  380. CLONIDINE HYDROCHLORIDE [Concomitant]
     Active Substance: CLONIDINE HYDROCHLORIDE
     Indication: Eczema
  381. HYDROMORPHONE HYDROCHLORIDE [Concomitant]
     Active Substance: HYDROMORPHONE HYDROCHLORIDE
     Indication: Product used for unknown indication
  382. NORTRIPTYLINE HYDROCHLORIDE [Concomitant]
     Active Substance: NORTRIPTYLINE HYDROCHLORIDE
     Indication: Product used for unknown indication
  383. ALBUTEROL SULFATE [Concomitant]
     Active Substance: ALBUTEROL SULFATE
     Indication: Product used for unknown indication
  384. CYCLOBENZAPRINE HYDROCHLORIDE [Concomitant]
     Active Substance: CYCLOBENZAPRINE HYDROCHLORIDE
     Indication: Eczema
  385. CYCLOBENZAPRINE HYDROCHLORIDE [Concomitant]
     Active Substance: CYCLOBENZAPRINE HYDROCHLORIDE
  386. ABACAVIR SULFATE\DOLUTEGRAVIR SODIUM\LAMIVUDINE [Concomitant]
     Active Substance: ABACAVIR SULFATE\DOLUTEGRAVIR SODIUM\LAMIVUDINE
     Indication: Product used for unknown indication
  387. ABACAVIR SULFATE\DOLUTEGRAVIR SODIUM\LAMIVUDINE [Concomitant]
     Active Substance: ABACAVIR SULFATE\DOLUTEGRAVIR SODIUM\LAMIVUDINE
     Indication: Product used for unknown indication
  388. ABACAVIR SULFATE\DOLUTEGRAVIR SODIUM\LAMIVUDINE [Concomitant]
     Active Substance: ABACAVIR SULFATE\DOLUTEGRAVIR SODIUM\LAMIVUDINE
     Indication: Product used for unknown indication
  389. ACETAMINOPHEN [Concomitant]
     Active Substance: ACETAMINOPHEN
     Indication: Product used for unknown indication
  390. DICLOFENAC SODIUM [Concomitant]
     Active Substance: DICLOFENAC SODIUM
     Indication: Product used for unknown indication
  391. CLONIDINE HYDROCHLORIDE [Concomitant]
     Active Substance: CLONIDINE HYDROCHLORIDE
     Indication: Product used for unknown indication
  392. CRINONE [Concomitant]
     Active Substance: PROGESTERONE
     Indication: Product used for unknown indication
  393. LYRICA [Concomitant]
     Active Substance: PREGABALIN
     Indication: Pain
  394. LYRICA [Concomitant]
     Active Substance: PREGABALIN
     Indication: Herpes zoster
  395. PSYLLIUM HUSK [Concomitant]
     Active Substance: PSYLLIUM HUSK
     Indication: Product used for unknown indication
  396. PSYLLIUM HUSK [Concomitant]
     Active Substance: PSYLLIUM HUSK
  397. PANTOPRAZOLE MAGNESIUM [Concomitant]
     Active Substance: PANTOPRAZOLE MAGNESIUM
     Indication: Product used for unknown indication
  398. PANTOPRAZOLE MAGNESIUM [Concomitant]
     Active Substance: PANTOPRAZOLE MAGNESIUM
  399. XELJANZ [Concomitant]
     Active Substance: TOFACITINIB CITRATE
     Indication: Rheumatoid arthritis
     Route: 048
  400. XELJANZ [Concomitant]
     Active Substance: TOFACITINIB CITRATE
     Indication: Herpes zoster
     Route: 048
  401. XELJANZ [Concomitant]
     Active Substance: TOFACITINIB CITRATE
  402. PROMETRIUM [Concomitant]
     Active Substance: PROGESTERONE
     Indication: Product used for unknown indication
  403. HERBALS\PLANTAGO INDICA WHOLE [Concomitant]
     Active Substance: HERBALS\PLANTAGO INDICA WHOLE
     Indication: Product used for unknown indication
  404. CATAPRES [Concomitant]
     Active Substance: CLONIDINE HYDROCHLORIDE
     Indication: Product used for unknown indication
  405. ACETAMINOPHEN\OXYCODONE HYDROCHLORIDE [Concomitant]
     Active Substance: ACETAMINOPHEN\OXYCODONE HYDROCHLORIDE
     Indication: Product used for unknown indication
  406. MELATONIN [Concomitant]
     Active Substance: MELATONIN
     Indication: Product used for unknown indication
  407. MELATONIN [Concomitant]
     Active Substance: MELATONIN
  408. MELATONIN [Concomitant]
     Active Substance: MELATONIN
  409. MELATONIN [Concomitant]
     Active Substance: MELATONIN
  410. MELATONIN [Concomitant]
     Active Substance: MELATONIN
  411. MELATONIN [Concomitant]
     Active Substance: MELATONIN
  412. MELATONIN [Concomitant]
     Active Substance: MELATONIN
  413. HERBALS\SENNA LEAF\SENNOSIDES [Concomitant]
     Active Substance: HERBALS\SENNA LEAF\SENNOSIDES
     Indication: Product used for unknown indication
  414. ASPIRIN\OXYCODONE HYDROCHLORIDE\OXYCODONE TEREPHTHALATE [Concomitant]
     Active Substance: ASPIRIN\OXYCODONE HYDROCHLORIDE\OXYCODONE TEREPHTHALATE
     Indication: Product used for unknown indication
  415. DICLOFENAC POTASSIUM [Concomitant]
     Active Substance: DICLOFENAC POTASSIUM
     Indication: Product used for unknown indication
  416. DICLOFENAC POTASSIUM [Concomitant]
     Active Substance: DICLOFENAC POTASSIUM
  417. DOLUTEGRAVIR [Concomitant]
     Active Substance: DOLUTEGRAVIR
     Indication: Product used for unknown indication
  418. LAMIVUDINE [Concomitant]
     Active Substance: LAMIVUDINE
     Indication: Product used for unknown indication
  419. DICLOFENAC SODIUM [Concomitant]
     Active Substance: DICLOFENAC SODIUM
     Indication: Product used for unknown indication
  420. DICLOFENAC SODIUM [Concomitant]
     Active Substance: DICLOFENAC SODIUM
  421. MONTELUKAST SODIUM [Concomitant]
     Active Substance: MONTELUKAST SODIUM
     Indication: Product used for unknown indication
  422. QUETIAPINE FUMARATE [Concomitant]
     Active Substance: QUETIAPINE FUMARATE
     Indication: Product used for unknown indication
     Route: 048
  423. VENLAFAXINE HYDROCHLORIDE [Concomitant]
     Active Substance: VENLAFAXINE HYDROCHLORIDE
     Indication: Product used for unknown indication
  424. ALBUTEROL SULFATE [Concomitant]
     Active Substance: ALBUTEROL SULFATE
     Indication: Product used for unknown indication
  425. ACETAMINOPHEN\OXYCODONE HYDROCHLORIDE [Concomitant]
     Active Substance: ACETAMINOPHEN\OXYCODONE HYDROCHLORIDE
     Indication: Product used for unknown indication
  426. DICLOFENAC SODIUM [Concomitant]
     Active Substance: DICLOFENAC SODIUM
     Indication: Product used for unknown indication
  427. NORTRIPTYLINE [Concomitant]
     Active Substance: NORTRIPTYLINE
     Indication: Product used for unknown indication
  428. METHYLPREDNISOLONE [Concomitant]
     Active Substance: METHYLPREDNISOLONE
     Indication: Product used for unknown indication
  429. METHYLPREDNISOLONE [Concomitant]
     Active Substance: METHYLPREDNISOLONE
  430. METHYLPREDNISOLONE [Concomitant]
     Active Substance: METHYLPREDNISOLONE
  431. METHYLPREDNISOLONE [Concomitant]
     Active Substance: METHYLPREDNISOLONE
  432. METHYLPREDNISOLONE [Concomitant]
     Active Substance: METHYLPREDNISOLONE
  433. METHYLPREDNISOLONE [Concomitant]
     Active Substance: METHYLPREDNISOLONE
  434. METHYLPREDNISOLONE [Concomitant]
     Active Substance: METHYLPREDNISOLONE
  435. METHYLPREDNISOLONE [Concomitant]
     Active Substance: METHYLPREDNISOLONE
  436. METHYLPREDNISOLONE [Concomitant]
     Active Substance: METHYLPREDNISOLONE
  437. PANTOPRAZOLE SODIUM [Concomitant]
     Active Substance: PANTOPRAZOLE SODIUM
     Indication: Product used for unknown indication
  438. HERBALS\PLANTAGO OVATA LEAF [Concomitant]
     Active Substance: HERBALS\PLANTAGO OVATA LEAF
     Indication: Product used for unknown indication
  439. SODIUM PICOSULFATE [Concomitant]
     Active Substance: SODIUM PICOSULFATE
     Indication: Product used for unknown indication
  440. TOCILIZUMAB [Concomitant]
     Active Substance: TOCILIZUMAB
     Indication: Rheumatoid arthritis
     Route: 058
  441. TOCILIZUMAB [Concomitant]
     Active Substance: TOCILIZUMAB
  442. TOCILIZUMAB [Concomitant]
     Active Substance: TOCILIZUMAB
     Route: 058
  443. TOCILIZUMAB [Concomitant]
     Active Substance: TOCILIZUMAB
     Route: 058
  444. TOCILIZUMAB [Concomitant]
     Active Substance: TOCILIZUMAB
     Route: 058
  445. TOCILIZUMAB [Concomitant]
     Active Substance: TOCILIZUMAB
  446. SALMETEROL XINAFOATE [Concomitant]
     Active Substance: SALMETEROL XINAFOATE
     Indication: Product used for unknown indication
  447. SALMETEROL XINAFOATE [Concomitant]
     Active Substance: SALMETEROL XINAFOATE
  448. PANTOPRAZOLE SODIUM [Concomitant]
     Active Substance: PANTOPRAZOLE SODIUM
     Indication: Product used for unknown indication
  449. CETIRIZINE HYDROCHLORIDE\PSEUDOEPHEDRINE HYDROCHLORIDE [Concomitant]
     Active Substance: CETIRIZINE HYDROCHLORIDE\PSEUDOEPHEDRINE HYDROCHLORIDE
     Indication: Product used for unknown indication
  450. CETIRIZINE HYDROCHLORIDE\PSEUDOEPHEDRINE HYDROCHLORIDE [Concomitant]
     Active Substance: CETIRIZINE HYDROCHLORIDE\PSEUDOEPHEDRINE HYDROCHLORIDE
     Dosage: TABLET (EXTENDED-RELEASE)
  451. PANTOPRAZOLE SODIUM ANHYDROUS [Concomitant]
     Active Substance: PANTOPRAZOLE SODIUM ANHYDROUS
     Indication: Product used for unknown indication
  452. MORPHINE [Concomitant]
     Active Substance: MORPHINE
     Indication: Product used for unknown indication
     Route: 058
  453. MORPHINE [Concomitant]
     Active Substance: MORPHINE
  454. MORPHINE [Concomitant]
     Active Substance: MORPHINE
     Route: 058
  455. PREDNISOLONE SODIUM PHOSPHATE [Concomitant]
     Active Substance: PREDNISOLONE SODIUM PHOSPHATE
     Indication: Product used for unknown indication
  456. RANITIDINE [Concomitant]
     Active Substance: RANITIDINE
     Indication: Product used for unknown indication
  457. HERBALS [Concomitant]
     Active Substance: HERBALS
     Indication: Product used for unknown indication
  458. CALCIUM ASCORBATE [Concomitant]
     Active Substance: CALCIUM ASCORBATE
     Indication: Product used for unknown indication
  459. QUETIAPINE FUMARATE [Concomitant]
     Active Substance: QUETIAPINE FUMARATE
     Indication: Product used for unknown indication
  460. QUETIAPINE FUMARATE [Concomitant]
     Active Substance: QUETIAPINE FUMARATE
     Route: 048
  461. CODEINE PHOSPHATE\GUAIFENESIN\PHENIRAMINE MALEATE [Concomitant]
     Active Substance: CODEINE PHOSPHATE\GUAIFENESIN\PHENIRAMINE MALEATE
     Indication: Product used for unknown indication
  462. OXYCODONE [Concomitant]
     Active Substance: OXYCODONE
     Indication: Product used for unknown indication
  463. INFLIXIMAB [Concomitant]
     Active Substance: INFLIXIMAB
     Indication: Product used for unknown indication
     Route: 042
  464. INFLIXIMAB [Concomitant]
     Active Substance: INFLIXIMAB
     Route: 042
  465. INFLIXIMAB [Concomitant]
     Active Substance: INFLIXIMAB
  466. ASCORBIC ACID;SODIUM ASCORBATE [Concomitant]
     Indication: Product used for unknown indication
     Route: 042
  467. DIPHENHYDRAMINE HYDROCHLORIDE [Concomitant]
     Active Substance: DIPHENHYDRAMINE HYDROCHLORIDE
     Indication: Product used for unknown indication
  468. DIPHENHYDRAMINE HYDROCHLORIDE [Concomitant]
     Active Substance: DIPHENHYDRAMINE HYDROCHLORIDE
  469. BUPROPION HYDROBROMIDE [Concomitant]
     Active Substance: BUPROPION HYDROBROMIDE
     Indication: Product used for unknown indication
  470. ASPIRIN\OXYCODONE HYDROCHLORIDE\OXYCODONE TEREPHTHALATE [Concomitant]
     Active Substance: ASPIRIN\OXYCODONE HYDROCHLORIDE\OXYCODONE TEREPHTHALATE
     Indication: Product used for unknown indication
  471. DIETARY SUPPLEMENT [Concomitant]
     Active Substance: DIETARY SUPPLEMENT
     Indication: Product used for unknown indication
  472. FLONASE ALLERGY RELIEF [Concomitant]
     Active Substance: FLUTICASONE PROPIONATE
     Indication: Product used for unknown indication
     Dosage: SPRAY, METERED DOSE
  473. FLONASE ALLERGY RELIEF [Concomitant]
     Active Substance: FLUTICASONE PROPIONATE
     Dosage: SPRAY, METERED DOSE
  474. FLONASE ALLERGY RELIEF [Concomitant]
     Active Substance: FLUTICASONE PROPIONATE
     Dosage: SPRAY, METERED DOSE
  475. FLONASE ALLERGY RELIEF [Concomitant]
     Active Substance: FLUTICASONE PROPIONATE
  476. FLONASE ALLERGY RELIEF [Concomitant]
     Active Substance: FLUTICASONE PROPIONATE
     Dosage: SPRAY, METERED DOSE
  477. FLONASE ALLERGY RELIEF [Concomitant]
     Active Substance: FLUTICASONE PROPIONATE
  478. MENTHOL [Concomitant]
     Active Substance: MENTHOL
     Indication: Product used for unknown indication
  479. WELLBUTRIN XL [Concomitant]
     Active Substance: BUPROPION HYDROCHLORIDE
     Indication: Product used for unknown indication

REACTIONS (4)
  - Maternal exposure during pregnancy [Recovered/Resolved]
  - Foetal death [Unknown]
  - Off label use [Unknown]
  - Prescribed overdose [Unknown]
